FAERS Safety Report 9521173 (Version 1)
Quarter: 2013Q1

REPORT INFORMATION
  Report Type: Spontaneous
  Country: US (occurrence: None)
  Receive Date: 20130305
  Receipt Date: 20130305
  Transmission Date: 20140127
  Serious: No
  Sender: FDA-Public Use
  Company Number: 163-21880-12080280

PATIENT
  Age: 76 Year
  Sex: Female

DRUGS (7)
  1. REVLIMID [Suspect]
     Indication: CHRONIC LYMPHOCYTIC LEUKAEMIA
     Dosage: 5MG, 1 IN 1D, PO
     Route: 048
     Dates: start: 201205, end: 201205
  2. VITAMIN D (ERGOCALCIFEROL) [Concomitant]
  3. LASIX (FUROSEMIDE) [Concomitant]
  4. GLYBURIDE (GLIBENCLAMIDE) [Concomitant]
  5. JANUVIA (SITAGLIPTIN PHOSPHATE) [Concomitant]
  6. CRESTOR (ROSUVASTATIN) [Concomitant]
  7. METFORMIN (METFORMIN) [Concomitant]

REACTIONS (3)
  - Platelet count decreased [None]
  - Chronic lymphocytic leukaemia [None]
  - Disease progression [None]
